FAERS Safety Report 25662354 (Version 1)
Quarter: 2025Q3

REPORT INFORMATION
  Report Type: Spontaneous
  Country: CA (occurrence: CA)
  Receive Date: 20250810
  Receipt Date: 20250810
  Transmission Date: 20251021
  Serious: Yes (Life-Threatening, Hospitalization, Disabling, Other)
  Sender: MERCK SHARP & DOHME LLC
  Company Number: CA-009507513-2317292

PATIENT
  Age: 72 Year
  Sex: Male
  Weight: 65 kg

DRUGS (9)
  1. KEYTRUDA [Suspect]
     Active Substance: PEMBROLIZUMAB
     Indication: Large cell lung cancer stage IV
     Route: 042
  2. AMLODIPINE [Concomitant]
     Active Substance: AMLODIPINE BESYLATE
     Route: 048
  3. AZARGA [Concomitant]
     Active Substance: BRINZOLAMIDE\TIMOLOL MALEATE
     Route: 065
  4. CALCIUM [Concomitant]
     Active Substance: CALCIUM
     Route: 065
  5. IMODIUM [Concomitant]
     Active Substance: LOPERAMIDE HYDROCHLORIDE
     Route: 065
  6. ROSUVASTATIN [Concomitant]
     Active Substance: ROSUVASTATIN
     Route: 048
  7. TRAVOPROST [Concomitant]
     Active Substance: TRAVOPROST
     Route: 065
  8. VITAMIN B12 [Concomitant]
     Active Substance: CYANOCOBALAMIN
     Route: 065
  9. VITAMIN D [Concomitant]
     Active Substance: VITAMIN D NOS
     Route: 065

REACTIONS (6)
  - Colectomy [Recovered/Resolved with Sequelae]
  - Ileus [Recovered/Resolved with Sequelae]
  - Colostomy [Recovered/Resolved with Sequelae]
  - Large intestine perforation [Recovered/Resolved with Sequelae]
  - Colitis [Recovered/Resolved with Sequelae]
  - Pneumoperitoneum [Recovered/Resolved with Sequelae]
